FAERS Safety Report 15782687 (Version 1)
Quarter: 2019Q1

REPORT INFORMATION
  Report Type: Spontaneous
  Country: FR (occurrence: FR)
  Receive Date: 20190102
  Receipt Date: 20190102
  Transmission Date: 20190417
  Serious: Yes (Other)
  Sender: FDA-Public Use
  Company Number: FR-009507513-1812FRA012294

PATIENT

DRUGS (2)
  1. DIPROSALIC [Suspect]
     Active Substance: BETAMETHASONE DIPROPIONATE
     Indication: SCAB
     Dosage: UNK
  2. MYCOSTER [Suspect]
     Active Substance: CICLOPIROX\CICLOPIROX OLAMINE
     Indication: SCAB
     Dosage: 1 DF, EVERY 15 DAYS
     Route: 061
     Dates: start: 201807, end: 20181211

REACTIONS (4)
  - Product use issue [Unknown]
  - Gamma-glutamyltransferase increased [Not Recovered/Not Resolved]
  - Underdose [Unknown]
  - Alanine aminotransferase increased [Not Recovered/Not Resolved]
